FAERS Safety Report 12463554 (Version 1)
Quarter: 2016Q2

REPORT INFORMATION
  Report Type: Spontaneous
  Country: CN (occurrence: CN)
  Receive Date: 20160614
  Receipt Date: 20160614
  Transmission Date: 20160815
  Serious: Yes (Other)
  Sender: FDA-Public Use
  Company Number: CN-ASTELLAS-2016US022159

PATIENT
  Age: 63 Year
  Sex: Male

DRUGS (3)
  1. PEMETREXED [Concomitant]
     Active Substance: PEMETREXED
     Indication: LUNG ADENOCARCINOMA
     Dosage: 0.8 G, ON DAY 1 EVERY 21 DAYS
     Route: 065
  2. TARCEVA [Suspect]
     Active Substance: ERLOTINIB HYDROCHLORIDE
     Indication: NON-SMALL CELL LUNG CANCER
     Route: 048
     Dates: start: 201404
  3. NEDAPLATIN [Concomitant]
     Active Substance: NEDAPLATIN
     Indication: LUNG ADENOCARCINOMA
     Dosage: 40 MG, DAYS 2-4 EVERY 21 DAYS
     Route: 065

REACTIONS (1)
  - Acute myocardial infarction [Recovered/Resolved]

NARRATIVE: CASE EVENT DATE: 201405
